FAERS Safety Report 14611107 (Version 3)
Quarter: 2019Q2

REPORT INFORMATION
  Report Type: Spontaneous
  Country: US (occurrence: US)
  Receive Date: 20180308
  Receipt Date: 20190424
  Transmission Date: 20190711
  Serious: Yes (Life-Threatening, Hospitalization, Other)
  Sender: FDA-Public Use
  Company Number: US-ACCORD-064014

PATIENT
  Age: 63 Year
  Sex: Female

DRUGS (1)
  1. CISPLATIN. [Suspect]
     Active Substance: CISPLATIN
     Indication: ENDOMETRIAL CANCER STAGE III
     Dosage: COMPLETED 9 CYCLES OF 40 MG/M^2/WEEK

REACTIONS (4)
  - Nausea [Recovered/Resolved]
  - Nephropathy toxic [Recovering/Resolving]
  - Vomiting [Recovered/Resolved]
  - Fanconi syndrome acquired [Recovering/Resolving]
